FAERS Safety Report 5843604-1 (Version None)
Quarter: 2008Q3

REPORT INFORMATION
  Report Type: 
  Country: None (occurrence: None)
  Receive Date: 20080813
  Receipt Date: 20080616
  Transmission Date: 20090109
  Serious: No
  Sender: FDA-Public Use
  Company Number: A0732080A

PATIENT
  Age: 74 Year
  Sex: Female

DRUGS (6)
  1. COREG CR [Suspect]
     Dosage: 80MG PER DAY
     Route: 048
     Dates: start: 20060101
  2. PROBENECID [Concomitant]
  3. LIPITOR [Concomitant]
  4. IMDUR [Concomitant]
  5. LISINOPRIL AND HYDROCHLOROTHIAZIDE [Concomitant]
  6. FUROSEMIDE [Concomitant]

REACTIONS (4)
  - BACK DISORDER [None]
  - GAIT DISTURBANCE [None]
  - PAIN [None]
  - PAIN IN EXTREMITY [None]
